FAERS Safety Report 6021138-1 (Version None)
Quarter: 2008Q4

REPORT INFORMATION
  Report Type: 
  Country: None (occurrence: None)
  Receive Date: 20081229
  Receipt Date: 20081217
  Transmission Date: 20090506
  Serious: Yes (Death, Other)
  Sender: FDA-Public Use
  Company Number: IE-AVENTIS-200816741EU

PATIENT
  Age: 76 Year
  Sex: Female

DRUGS (7)
  1. TRITACE [Suspect]
     Route: 048
     Dates: start: 20061201
  2. FRUSEMIDE [Suspect]
     Route: 048
     Dates: start: 20060101
  3. MESULID [Suspect]
     Indication: RHEUMATOID ARTHRITIS
     Route: 048
     Dates: start: 20060630, end: 20061201
  4. MESULID [Suspect]
     Route: 048
     Dates: start: 20061201, end: 20070207
  5. ASPIRIN [Concomitant]
  6. LANOXIN [Concomitant]
  7. PLAVIX [Concomitant]

REACTIONS (3)
  - CARDIO-RESPIRATORY ARREST [None]
  - DYSPNOEA [None]
  - RENAL FAILURE CHRONIC [None]
